FAERS Safety Report 9522594 (Version 1)
Quarter: 2013Q3

REPORT INFORMATION
  Report Type: Spontaneous
  Country: US (occurrence: US)
  Receive Date: 20130913
  Receipt Date: 20130913
  Transmission Date: 20140515
  Serious: No
  Sender: FDA-Public Use
  Company Number: US-PFIZER INC-2013263154

PATIENT
  Sex: Male

DRUGS (5)
  1. CELEBREX [Suspect]
     Indication: ARTHRITIS
     Dosage: 100 MG, 1X/DAY
     Route: 048
     Dates: start: 201308, end: 201308
  2. CELEBREX [Suspect]
     Dosage: 100 MG, 1X/DAY
     Route: 048
     Dates: start: 201308
  3. PREVACID [Concomitant]
     Dosage: UNK
  4. CARAFATE [Concomitant]
     Dosage: UNK
  5. ZIAC [Concomitant]
     Indication: HYPERTENSION
     Dosage: UNK

REACTIONS (1)
  - Drug ineffective [Unknown]
